FAERS Safety Report 24229800 (Version 1)
Quarter: 2024Q3

REPORT INFORMATION
  Report Type: Spontaneous
  Country: US (occurrence: None)
  Receive Date: 20240820
  Receipt Date: 20240820
  Transmission Date: 20241017
  Serious: Yes (Hospitalization)
  Sender: Public
  Company Number: None

PATIENT
  Age: 58 Year
  Sex: Male
  Weight: 101.7 kg

DRUGS (3)
  1. CARBOPLATIN [Suspect]
     Active Substance: CARBOPLATIN
  2. Paclitaxel (Taxol) [Concomitant]
  3. PEMBROLIZUMAB [Concomitant]
     Active Substance: PEMBROLIZUMAB

REACTIONS (13)
  - Chest pain [None]
  - Musculoskeletal chest pain [None]
  - Pain [None]
  - Hyponatraemia [None]
  - Hypokalaemia [None]
  - Hepatic enzyme increased [None]
  - Leukocytosis [None]
  - Decreased appetite [None]
  - Hypoalbuminaemia [None]
  - Decreased appetite [None]
  - Dehydration [None]
  - Chronic kidney disease [None]
  - Hypophagia [None]

NARRATIVE: CASE EVENT DATE: 20240816
